FAERS Safety Report 4965852-5 (Version None)
Quarter: 2006Q2

REPORT INFORMATION
  Report Type: 
  Country: None (occurrence: None)
  Receive Date: 20060405
  Receipt Date: 20060405
  Transmission Date: 20061013
  Serious: Yes (Hospitalization, Other)
  Sender: FDA-Public Use
  Company Number: None

PATIENT
  Sex: Female
  Weight: 71.2 kg

DRUGS (3)
  1. FLUOROURACIL [Suspect]
     Indication: COLON CANCER
     Dosage: 4928 MG
     Dates: start: 20051213
  2. LEUCOVORIN CALCIUM [Suspect]
     Dosage: 704 MG
     Dates: start: 20051213
  3. ELOXATIN [Suspect]
     Dosage: 150 MG
     Dates: start: 20051213

REACTIONS (30)
  - ALANINE AMINOTRANSFERASE INCREASED [None]
  - ASPARTATE AMINOTRANSFERASE INCREASED [None]
  - ASTHENIA [None]
  - BLOOD ALKALINE PHOSPHATASE INCREASED [None]
  - BLOOD BILIRUBIN INCREASED [None]
  - BLOOD POTASSIUM INCREASED [None]
  - CONFUSIONAL STATE [None]
  - DEHYDRATION [None]
  - DIABETES MELLITUS [None]
  - DIABETIC KETOACIDOSIS [None]
  - DIARRHOEA [None]
  - EROSIVE OESOPHAGITIS [None]
  - GASTRIC DISORDER [None]
  - GASTRIC HAEMORRHAGE [None]
  - HAEMATEMESIS [None]
  - HAEMATOCRIT DECREASED [None]
  - HYPERGLYCAEMIA [None]
  - ILEAL ULCER [None]
  - INTESTINAL ANASTOMOSIS [None]
  - LETHARGY [None]
  - METABOLIC ACIDOSIS [None]
  - NAUSEA [None]
  - NEUTROPHIL COUNT DECREASED [None]
  - OESOPHAGEAL ULCER [None]
  - RENAL FAILURE [None]
  - SEPSIS [None]
  - STOMATITIS [None]
  - THROMBOSIS [None]
  - VOMITING [None]
  - WHITE BLOOD CELL COUNT DECREASED [None]
